FAERS Safety Report 8902834 (Version 1)
Quarter: 2012Q4

REPORT INFORMATION
  Report Type: 
  Country: US (occurrence: US)
  Receive Date: 20121112
  Receipt Date: 20121112
  Transmission Date: 20130627
  Serious: No
  Sender: FDA-Public Use
  Company Number: US-PFIZER INC-2012280910

PATIENT
  Age: 56 Year
  Sex: Female
  Weight: 47.62 kg

DRUGS (11)
  1. LYRICA [Suspect]
     Indication: FIBROMYALGIA
     Dosage: 75 mg, daily
     Route: 048
     Dates: start: 20121107
  2. LYRICA [Suspect]
     Indication: BACK DISORDER NOS
  3. LYRICA [Suspect]
     Indication: NECK DISCOMFORT
  4. LYRICA [Suspect]
     Indication: LEG DISCOMFORT
  5. LYRICA [Suspect]
     Indication: SWELLING OF LEGS
  6. DILTIAZEM [Concomitant]
     Indication: BLOOD PRESSURE HIGH
     Dosage: 300 mg, daily
  7. RAMIPRIL [Concomitant]
     Indication: BLOOD PRESSURE HIGH
     Dosage: 10 mg, daily
  8. SIMVASTATIN [Concomitant]
     Indication: HIGH CHOLESTEROL
     Dosage: 20 mg, daily
  9. NEXIUM [Concomitant]
     Indication: ACID REFLUX (ESOPHAGEAL)
     Dosage: 40 mg, 2x/day
  10. PERCOCET [Concomitant]
     Indication: PAIN
     Dosage: [oxycodone 20mg]/[ cetaminophen 650mg], every 4 hours
  11. CLONAZEPAM [Concomitant]
     Indication: ANXIETY ATTACK
     Dosage: 2 mg, as needed

REACTIONS (4)
  - Heart rate increased [Unknown]
  - Dizziness [Unknown]
  - Somnolence [Unknown]
  - Off label use [Unknown]
